FAERS Safety Report 9296823 (Version 2)
Quarter: 2013Q4

REPORT INFORMATION
  Report Type: Spontaneous
  Country: US (occurrence: US)
  Receive Date: 20130517
  Receipt Date: 20131108
  Transmission Date: 20140711
  Serious: Yes (Hospitalization)
  Sender: FDA-Public Use
  Company Number: US-B.I. PHARMACEUTICALS,INC./RIDGEFIELD-2013-BI-13915BP

PATIENT
  Age: 61 Year
  Sex: Male
  Weight: 86.18 kg

DRUGS (14)
  1. PRADAXA [Suspect]
     Indication: ANTICOAGULANT THERAPY
     Dosage: 300 MG
     Route: 048
     Dates: start: 20110203, end: 20111231
  2. GLUCOTROL [Concomitant]
     Route: 048
  3. FENTANYL [Concomitant]
  4. SYMBICORT [Concomitant]
  5. SIMVASTATIN [Concomitant]
     Dosage: 40 MG
     Route: 048
  6. FUROSEMIDE [Concomitant]
     Dosage: 40 MG
     Route: 048
  7. LEXAPRO [Concomitant]
     Dosage: 20 MG
     Route: 048
  8. LYRICA [Concomitant]
     Dosage: 225 MG
     Route: 048
  9. FLOMAX [Concomitant]
     Dosage: 0.4 MG
     Route: 048
  10. K-DUR [Concomitant]
     Dosage: 10 MG
     Route: 048
  11. REQUIP [Concomitant]
     Dosage: 1 MG
     Route: 048
  12. COREG [Concomitant]
     Dosage: 25 MG
     Route: 048
  13. TRAMADOL [Concomitant]
     Dosage: 50 MG
     Route: 048
  14. NEXIUM [Concomitant]
     Dosage: 40 MG
     Route: 048

REACTIONS (2)
  - Upper gastrointestinal haemorrhage [Unknown]
  - Gastritis haemorrhagic [Unknown]
